FAERS Safety Report 15680511 (Version 1)
Quarter: 2018Q4

REPORT INFORMATION
  Report Type: Report from Study
  Country: JP (occurrence: JP)
  Receive Date: 20181203
  Receipt Date: 20181203
  Transmission Date: 20190205
  Serious: Yes (Hospitalization, Other)
  Sender: FDA-Public Use
  Company Number: JP-ACTELION-A-CH2016-142345

PATIENT
  Age: 30 Year
  Sex: Female

DRUGS (27)
  1. EPOPROSTENOL ACT [Suspect]
     Active Substance: EPOPROSTENOL
     Dosage: 2.7 NG/KG, PER MIN
     Route: 042
     Dates: start: 20170914
  2. ALDACTONE A [Concomitant]
     Active Substance: SPIRONOLACTONE
     Indication: PRODUCT USED FOR UNKNOWN INDICATION
  3. CALONAL [Concomitant]
     Active Substance: ACETAMINOPHEN
  4. CARBOCISTEINE [Concomitant]
     Active Substance: CARBOCYSTEINE
  5. PREDONINE [Concomitant]
     Active Substance: PREDNISOLONE
     Dosage: 9 MG, UNK
     Dates: start: 20181003
  6. EPOPROSTENOL ACT [Suspect]
     Active Substance: EPOPROSTENOL
     Dosage: 2.6 NG/KG, PER MIN
     Route: 042
     Dates: start: 20170926
  7. LEVOFLOXACIN. [Concomitant]
     Active Substance: LEVOFLOXACIN
  8. ARTIST [Concomitant]
     Active Substance: CARVEDILOL
  9. POTASSIUM IODIDE. [Concomitant]
     Active Substance: POTASSIUM IODIDE
  10. EPOPROSTENOL ACT [Suspect]
     Active Substance: EPOPROSTENOL
     Dosage: 2.9 ML/HR, UNK
     Route: 042
     Dates: start: 20160615
  11. EPOPROSTENOL ACT [Suspect]
     Active Substance: EPOPROSTENOL
     Dosage: 2.5 NG/KG, PER MIN
     Route: 042
     Dates: start: 20171107
  12. EPOPROSTENOL ACT [Suspect]
     Active Substance: EPOPROSTENOL
     Dosage: 2.9 NG/KG, PER MIN
     Route: 042
  13. FUROSEMIDE. [Suspect]
     Active Substance: FUROSEMIDE
     Indication: RIGHT VENTRICULAR FAILURE
     Dosage: 20 MG, QD
     Route: 048
     Dates: start: 20160527, end: 20160801
  14. EPOPROSTENOL ACT [Suspect]
     Active Substance: EPOPROSTENOL
     Indication: PULMONARY ARTERIAL HYPERTENSION
     Dosage: 4.1 ML/HR, QD
     Route: 042
     Dates: start: 20140825, end: 20160614
  15. LASIX [Concomitant]
     Active Substance: FUROSEMIDE
  16. ASVERIN (TIPEPIDINE HIBENZATE) [Concomitant]
     Active Substance: TIPEPIDINE HIBENZATE
  17. OPSUMIT [Suspect]
     Active Substance: MACITENTAN
     Indication: PULMONARY ARTERIAL HYPERTENSION
     Dosage: 10 MG, OD
     Route: 048
     Dates: start: 20150807
  18. EPOPROSTENOL ACT [Suspect]
     Active Substance: EPOPROSTENOL
     Dosage: 2.8 NG/KG, PER MIN
     Route: 042
     Dates: start: 20170912
  19. EPOPROSTENOL ACT [Suspect]
     Active Substance: EPOPROSTENOL
     Dosage: 2.5 NG/KG, PER MIN
     Route: 042
     Dates: start: 20171206
  20. ADCIRCA [Concomitant]
     Active Substance: TADALAFIL
     Indication: PRODUCT USED FOR UNKNOWN INDICATION
     Dosage: UNK
  21. FERROUS SULFATE. [Concomitant]
     Active Substance: FERROUS SULFATE
     Indication: PRODUCT USED FOR UNKNOWN INDICATION
  22. SODIUM CHLORIDE. [Concomitant]
     Active Substance: SODIUM CHLORIDE
  23. APHTASOLON [Concomitant]
  24. DEXALTIN [Concomitant]
     Active Substance: DEXAMETHASONE
  25. OXYGEN. [Concomitant]
     Active Substance: OXYGEN
     Indication: PRODUCT USED FOR UNKNOWN INDICATION
  26. SOLULACT [Concomitant]
  27. SPIRONOLACTONE. [Concomitant]
     Active Substance: SPIRONOLACTONE

REACTIONS (21)
  - Erythema [Recovered/Resolved]
  - Root canal infection [Unknown]
  - Catheter site erythema [Recovered/Resolved]
  - Sputum retention [Recovered/Resolved]
  - Device related infection [Recovered/Resolved]
  - Thyroiditis [Unknown]
  - Swelling [Recovered/Resolved]
  - Dental caries [Unknown]
  - Periodontitis [Unknown]
  - White blood cell count increased [Recovered/Resolved]
  - Hypokalaemia [Recovered/Resolved]
  - Pyrexia [Recovered/Resolved]
  - Abdominal pain [Recovered/Resolved]
  - Cough [Recovered/Resolved]
  - Dermatitis contact [Recovered/Resolved]
  - Oropharyngeal pain [Recovered/Resolved]
  - Cardiac failure [Recovering/Resolving]
  - Gastritis [Recovered/Resolved]
  - Hyperthyroidism [Not Recovered/Not Resolved]
  - Rhinorrhoea [Recovered/Resolved]
  - Endodontic procedure [Unknown]

NARRATIVE: CASE EVENT DATE: 20160526
